FAERS Safety Report 7183456-3 (Version None)
Quarter: 2010Q4

REPORT INFORMATION
  Report Type: 
  Country: None (occurrence: None)
  Receive Date: 20101220
  Receipt Date: 20101220
  Transmission Date: 20110411
  Serious: Yes (Hospitalization)
  Sender: FDA-Public Use
  Company Number: None

PATIENT
  Sex: Female
  Weight: 56 kg

DRUGS (3)
  1. CYCLOPHOSPHAMIDE [Suspect]
     Dosage: 972 MG
     Dates: end: 20101117
  2. DOXORUBICIN HYDROCHLORIDE [Suspect]
     Dosage: 97 MG
     Dates: end: 20101117
  3. NEULASTA [Suspect]
     Dosage: 6 MG
     Dates: end: 20101118

REACTIONS (2)
  - DEVICE RELATED INFECTION [None]
  - SEPSIS [None]
